FAERS Safety Report 7601533-7 (Version None)
Quarter: 2011Q3

REPORT INFORMATION
  Report Type: 
  Country: None (occurrence: None)
  Receive Date: 20110711
  Receipt Date: 20110628
  Transmission Date: 20111222
  Serious: Yes (Other)
  Sender: FDA-Public Use
  Company Number: PHHY2011AR58511

PATIENT
  Sex: Female

DRUGS (1)
  1. ZOLEDRONOC ACID [Suspect]
     Indication: OSTEOPOROSIS
     Dates: start: 20090821

REACTIONS (8)
  - FEELING ABNORMAL [None]
  - ARTHRALGIA [None]
  - DEAFNESS [None]
  - VISUAL IMPAIRMENT [None]
  - DISCOMFORT [None]
  - HEARING IMPAIRED [None]
  - PYREXIA [None]
  - VERTIGO [None]
